FAERS Safety Report 6589302-0 (Version None)
Quarter: 2010Q1

REPORT INFORMATION
  Report Type: 
  Country: None (occurrence: None)
  Receive Date: 20100218
  Receipt Date: 20100209
  Transmission Date: 20100710
  Serious: Yes (Death, Life-Threatening, Other)
  Sender: FDA-Public Use
  Company Number: US-ROXANE LABORATORIES, INC.-2010-DE-00771GD

PATIENT
  Age: 50 Year
  Sex: Female

DRUGS (7)
  1. MORPHINE SULFATE [Suspect]
     Indication: BACK PAIN
     Dosage: SOMETIMES DOUBLED UP ON HER DOSE
     Route: 048
  2. DULOXETINE HYDROCHLORIDE [Suspect]
     Route: 048
  3. BENZODIAZEPINE [Suspect]
     Route: 048
  4. PREGABALIN [Suspect]
     Route: 048
  5. DIAZEPAM [Concomitant]
  6. HYDROCODONE BITARTRATE AND ACETAMINOPHEN [Concomitant]
  7. TOPIRAMATE [Concomitant]

REACTIONS (10)
  - ALTERED STATE OF CONSCIOUSNESS [None]
  - APNOEA [None]
  - ASPIRATION [None]
  - BRAIN OEDEMA [None]
  - CARDIAC ARREST [None]
  - CARDIO-RESPIRATORY ARREST [None]
  - COMPLETED SUICIDE [None]
  - DRUG ABUSE [None]
  - DRUG TOXICITY [None]
  - HYPOTENSION [None]
